FAERS Safety Report 11121760 (Version 1)
Quarter: 2015Q2

REPORT INFORMATION
  Report Type: Report from Study
  Country: VE (occurrence: VE)
  Receive Date: 20150519
  Receipt Date: 20150519
  Transmission Date: 20150821
  Serious: Yes (Other)
  Sender: FDA-Public Use
  Company Number: PHHY2015VE056389

PATIENT
  Age: 75 Year
  Sex: Female

DRUGS (3)
  1. ROCALTROL [Concomitant]
     Active Substance: CALCITRIOL
     Indication: PROPHYLAXIS
     Dosage: 0.25 MG, QD
     Route: 065
  2. CALCIUM [Concomitant]
     Active Substance: CALCIUM
     Indication: PROPHYLAXIS
     Dosage: UNK, QOD
     Route: 048
  3. ACLASTA [Suspect]
     Active Substance: ZOLEDRONIC ACID
     Indication: PROPHYLAXIS
     Dosage: 5 MG, ANNUALLY
     Route: 065
     Dates: start: 20091104, end: 201311

REACTIONS (4)
  - Chest pain [Unknown]
  - Infectious mononucleosis [Recovered/Resolved]
  - Immune system disorder [Unknown]
  - Asthma [Unknown]

NARRATIVE: CASE EVENT DATE: 201311
